FAERS Safety Report 6593292-4 (Version None)
Quarter: 2010Q1

REPORT INFORMATION
  Report Type: 
  Country: None (occurrence: None)
  Receive Date: 20100222
  Receipt Date: 20090126
  Transmission Date: 20100710
  Serious: No
  Sender: FDA-Public Use
  Company Number: US-BRISTOL-MYERS SQUIBB COMPANY-14427330

PATIENT
  Age: 59 Year
  Sex: Female
  Weight: 84 kg

DRUGS (8)
  1. ORENCIA [Suspect]
     Indication: RHEUMATOID ARTHRITIS
     Dosage: INITIATED IN AUG. RECEIVED 5TH DOSE ON 01DEC08 0,2,6 WEEKS MONTHLY
     Route: 042
     Dates: start: 20080821
  2. PREDNISONE [Concomitant]
  3. NAPROSYN [Concomitant]
  4. DIOVAN [Concomitant]
  5. ZOCOR [Concomitant]
  6. PRILOSEC [Concomitant]
  7. CENTRUM SILVER [Concomitant]
  8. CALCIUM [Concomitant]

REACTIONS (1)
  - EPISTAXIS [None]
